FAERS Safety Report 4519032-8 (Version None)
Quarter: 2004Q4

REPORT INFORMATION
  Report Type: 
  Country: None (occurrence: None)
  Receive Date: 20041201
  Receipt Date: 20041115
  Transmission Date: 20050328
  Serious: No
  Sender: FDA-Public Use
  Company Number: 2004GB02302

PATIENT
  Age: 63 Year
  Sex: Female
  Weight: 92.6 kg

DRUGS (6)
  1. CRESTOR [Suspect]
     Indication: LIPIDS INCREASED
     Dosage: 10 MG PO
     Route: 048
  2. METFORMIN HCL [Concomitant]
  3. PIOGLITAZONE HCL [Concomitant]
  4. ZESTORETIC [Concomitant]
  5. ATORVASTATIN [Concomitant]
  6. EZETIMIBE [Concomitant]

REACTIONS (1)
  - ASTHENIA [None]
